FAERS Safety Report 13248082 (Version 4)
Quarter: 2017Q2

REPORT INFORMATION
  Report Type: Spontaneous
  Country: JP (occurrence: JP)
  Receive Date: 20170217
  Receipt Date: 20170420
  Transmission Date: 20170830
  Serious: Yes (Life-Threatening, Other)
  Sender: FDA-Public Use
  Company Number: JP-009507513-1702JPN000616J

PATIENT
  Age: 68 Year
  Sex: Female
  Weight: 56 kg

DRUGS (8)
  1. PROPOFOL. [Suspect]
     Active Substance: PROPOFOL
     Indication: INDUCTION AND MAINTENANCE OF ANAESTHESIA
     Dosage: 500 MG, UNK
     Route: 041
     Dates: start: 20160627, end: 20160627
  2. ESLAX INTRAVENOUS 25MG/2.5ML [Suspect]
     Active Substance: ROCURONIUM BROMIDE
     Indication: NEUROMUSCULAR BLOCKING THERAPY
     Dosage: 70 MG, UNK
     Route: 042
     Dates: start: 20160627, end: 20160627
  3. PROPOFOL. [Suspect]
     Active Substance: PROPOFOL
     Dosage: UNK UNK, UNKNOWN
     Route: 041
  4. KETALAR [Concomitant]
     Active Substance: KETAMINE HYDROCHLORIDE
     Indication: MAINTENANCE OF ANAESTHESIA
     Dosage: 2 ML, UNK
     Route: 042
     Dates: start: 20160627, end: 20160627
  5. XYLOCAINE [Suspect]
     Active Substance: LIDOCAINE HYDROCHLORIDE
     Indication: ANALGESIC THERAPY
     Dosage: 60 MG, UNK
     Route: 008
     Dates: start: 20160627, end: 20160627
  6. FENTANYL. [Suspect]
     Active Substance: FENTANYL
     Indication: INDUCTION OF ANAESTHESIA
     Dosage: 3 ML, UNK
     Route: 042
     Dates: start: 20160627, end: 20160627
  7. BRIDION [Suspect]
     Active Substance: SUGAMMADEX
     Indication: NEUROMUSCULAR BLOCKADE REVERSAL
     Dosage: 200 MG, QD
     Route: 042
     Dates: start: 20160627, end: 20160627
  8. VECURONIUM BROMIDE. [Concomitant]
     Active Substance: VECURONIUM BROMIDE
     Indication: MAINTENANCE OF ANAESTHESIA
     Dosage: 90 MG, UNK
     Route: 042
     Dates: start: 20160627, end: 20160627

REACTIONS (2)
  - Arteriospasm coronary [Recovering/Resolving]
  - Atrioventricular block complete [Recovering/Resolving]

NARRATIVE: CASE EVENT DATE: 20160627
